FAERS Safety Report 7868096-2 (Version None)
Quarter: 2011Q4

REPORT INFORMATION
  Report Type: 
  Country: None (occurrence: None)
  Receive Date: 20111028
  Receipt Date: 20111021
  Transmission Date: 20120403
  Serious: Yes (Other)
  Sender: FDA-Public Use
  Company Number: BR-PFIZER INC-2011256634

PATIENT
  Age: 63 Year
  Sex: Female
  Weight: 83.8 kg

DRUGS (13)
  1. METFFORMIN HYDROCHLORIDE [Concomitant]
     Dosage: 2550 MG, DAILY
  2. INSULIN GLARGINE [Concomitant]
     Dosage: 54 IU, UNK
  3. ACETYLSALICYLIC ACID [Concomitant]
     Dosage: 100 MG, UNK
  4. GALVUSMET [Concomitant]
     Indication: DIABETES MELLITUS
     Dosage: 50MG /1000 MG
  5. PIOGLITAZONE [Suspect]
  6. GLICLAZIDE [Concomitant]
     Dosage: 160 MG, DAILY
  7. GLICLAZIDE [Concomitant]
     Dosage: 90 MG, DAILY
  8. INSULIN ASPART [Concomitant]
     Dosage: 10 IU, AT LUNCH
  9. METFFORMIN HYDROCHLORIDE [Concomitant]
     Dosage: 1700 MG, DAILY
  10. NPH INSULIN [Concomitant]
     Dosage: 1.6 IU/KG, DAILY
  11. ENALAPRIL [Concomitant]
     Dosage: 10 MG, UNK
  12. INSULIN ASPART [Concomitant]
     Dosage: 28 IU, ON MEALS (8+10+10)
  13. ATORVASTATIN CALCIUM [Suspect]
     Dosage: 20 MG, UNK

REACTIONS (6)
  - IMPAIRED GASTRIC EMPTYING [None]
  - BLOOD GLUCOSE FLUCTUATION [None]
  - DENTAL FISTULA [None]
  - INFECTION [None]
  - GLYCOSYLATED HAEMOGLOBIN INCREASED [None]
  - DYSPEPSIA [None]
